FAERS Safety Report 5034602-9 (Version None)
Quarter: 2006Q2

REPORT INFORMATION
  Report Type: 
  Country: None (occurrence: None)
  Receive Date: 20060621
  Receipt Date: 20060614
  Transmission Date: 20061013
  Serious: Yes (Life-Threatening)
  Sender: FDA-Public Use
  Company Number: 2006-141740-NL

PATIENT
  Age: 84 Year
  Sex: Female

DRUGS (3)
  1. VECURONIUM BROMIDE [Suspect]
     Indication: MUSCLE RELAXANT THERAPY
     Dosage: 8 MG ONCE INTRAVENOUS (NOS)
     Route: 042
     Dates: start: 20050516, end: 20050516
  2. PROPOFOL [Concomitant]
  3. ROPIVACAINE [Concomitant]

REACTIONS (1)
  - ATELECTASIS [None]
